FAERS Safety Report 8590314-6 (Version None)
Quarter: 2012Q3

REPORT INFORMATION
  Report Type: 
  Country: None (occurrence: None)
  Receive Date: 20120813
  Receipt Date: 20120806
  Transmission Date: 20120928
  Serious: Yes (Other)
  Sender: FDA-Public Use
  Company Number: JP-GLAXOSMITHKLINE-B0821874A

PATIENT
  Sex: Male

DRUGS (9)
  1. FUROSEMIDE [Concomitant]
     Route: 065
  2. NESINA [Concomitant]
     Route: 048
  3. CLONAZEPAM [Concomitant]
     Route: 048
  4. PROMAC [Concomitant]
     Route: 048
  5. ASPIRIN [Concomitant]
     Route: 048
  6. VALTREX [Suspect]
     Indication: HERPES ZOSTER
     Dosage: 250MG PER DAY
     Route: 048
     Dates: start: 20120803, end: 20120804
  7. SIGMART [Concomitant]
     Route: 065
  8. FAMOTIDINE [Concomitant]
     Route: 065
  9. MENEST [Concomitant]
     Route: 048

REACTIONS (2)
  - HALLUCINATION [None]
  - AFFECT LABILITY [None]
